FAERS Safety Report 7779189-2 (Version None)
Quarter: 2011Q3

REPORT INFORMATION
  Report Type: 
  Country: None (occurrence: None)
  Receive Date: 20110926
  Receipt Date: 20110826
  Transmission Date: 20111222
  Serious: Yes (Death, Life-Threatening, Hospitalization)
  Sender: FDA-Public Use
  Company Number: JP-SANOFI-AVENTIS-2011SA017596

PATIENT
  Age: 63 Year
  Sex: Female
  Weight: 44 kg

DRUGS (20)
  1. ZONISAMIDE [Concomitant]
     Indication: BRAIN CONTUSION
     Route: 048
     Dates: start: 20101008, end: 20101112
  2. APIDRA [Suspect]
     Dosage: CONTINUOUS SUBCUTANEOUS INSULIN INFUSION (CSII)
     Route: 058
     Dates: start: 20100713, end: 20100715
  3. ENALAPRIL MALEATE [Concomitant]
     Route: 048
     Dates: end: 20101112
  4. APIDRA [Suspect]
     Indication: DIABETES MELLITUS
     Dosage: CONTINUOUS SUBCUTANEOUS INSULIN INFUSION (CSII)
     Route: 058
     Dates: start: 20100709, end: 20100711
  5. APIDRA [Suspect]
     Dosage: CONTINUOUS SUBCUTANEOUS INSULIN INFUSION (CSII)
     Route: 058
     Dates: start: 20100729, end: 20100805
  6. APIDRA [Suspect]
     Dosage: CONTINUOUS SUBCUTANEOUS INSULIN INFUSION (CSII)
     Route: 058
     Dates: start: 20100715, end: 20100724
  7. APIDRA [Suspect]
     Dosage: CONTINUOUS SUBCUTANEOUS INSULIN INFUSION (CSII)
     Route: 058
     Dates: start: 20100712, end: 20100713
  8. CANDESARTAN CILEXETIL [Concomitant]
     Route: 048
     Dates: end: 20101112
  9. APIDRA [Suspect]
     Dosage: CONTINUOUS SUBCUTANEOUS INSULIN INFUSION (CSII)
     Route: 058
     Dates: start: 20100805, end: 20101112
  10. SENNOSIDE A+B [Concomitant]
     Indication: CONSTIPATION
     Route: 048
     Dates: start: 20100728, end: 20101112
  11. APIDRA [Suspect]
     Dosage: CONTINUOUS SUBCUTANEOUS INSULIN INFUSION (CSII)
     Route: 058
     Dates: start: 20100711, end: 20100712
  12. KREMEZIN [Concomitant]
     Route: 048
     Dates: end: 20101108
  13. APIDRA [Suspect]
     Dosage: CONTINUOUS SUBCUTANEOUS INSULIN INFUSION (CSII)
     Route: 058
     Dates: start: 20100727, end: 20100729
  14. APIDRA [Suspect]
     Dosage: CONTINUOUS SUBCUTANEOUS INSULIN INFUSION (CSII)
     Route: 058
     Dates: start: 20100724, end: 20100727
  15. PLAVIX [Concomitant]
     Indication: PROPHYLAXIS
     Route: 048
     Dates: end: 20101112
  16. ALL OTHER THERAPEUTIC PRODUCTS [Concomitant]
     Indication: BRAIN CONTUSION
     Route: 048
     Dates: end: 20101007
  17. METHYCOBAL [Concomitant]
     Route: 048
     Dates: end: 20101112
  18. APIDRA [Suspect]
     Dosage: CONTINUOUS SUBCUTANEOUS INSULIN INFUSION (CSII)
     Route: 058
     Dates: start: 20101112, end: 20101118
  19. JUVELA [Concomitant]
     Route: 048
     Dates: end: 20101112
  20. CONIEL [Concomitant]
     Route: 048
     Dates: start: 20100704, end: 20101112

REACTIONS (6)
  - CEREBRAL HAEMORRHAGE [None]
  - DIABETIC KETOACIDOSIS [None]
  - DIABETIC NEUROPATHY [None]
  - VOMITING [None]
  - CARDIAC FAILURE [None]
  - CEREBRAL INFARCTION [None]
